FAERS Safety Report 12564689 (Version 1)
Quarter: 2016Q3

REPORT INFORMATION
  Report Type: Spontaneous
  Country: None (occurrence: None)
  Receive Date: 20160715
  Receipt Date: 20160715
  Transmission Date: 20161109
  Serious: No
  Sender: FDA-Public Use
  Company Number: None

PATIENT
  Sex: Female

DRUGS (1)
  1. BANANA BOAT (AVOBENZONE\HOMOSALATE\OCTINOXATE\OCTISALATE\OCTOCRYLENE\OXYBENZONE) [Suspect]
     Active Substance: AVOBENZONE\HOMOSALATE\OCTINOXATE\OCTISALATE\OCTOCRYLENE\OXYBENZONE

REACTIONS (3)
  - Expired product administered [None]
  - Product label confusion [None]
  - Sunburn [None]

NARRATIVE: CASE EVENT DATE: 20160616
